FAERS Safety Report 19491112 (Version 1)
Quarter: 2021Q3

REPORT INFORMATION
  Report Type: Spontaneous
  Country: DE (occurrence: DE)
  Receive Date: 20210705
  Receipt Date: 20210705
  Transmission Date: 20211014
  Serious: Yes (Hospitalization)
  Sender: FDA-Public Use
  Company Number: DE-TEVA-2021-DE-1928375

PATIENT
  Age: 48 Year
  Sex: Male
  Weight: 130 kg

DRUGS (7)
  1. QUETIAPIN [Suspect]
     Active Substance: QUETIAPINE
     Dosage: 50 MILLIGRAM DAILY; 1?0?0?0
     Route: 048
  2. AMLODIPIN/HYDROCHLOROTHIAZID/OLMESARTAN [Concomitant]
     Dosage: 1 DOSAGE FORMS DAILY; 40|10|25 MG, 1?0?0?0
     Route: 048
  3. QUETIAPIN [Suspect]
     Active Substance: QUETIAPINE
     Dosage: 2 DOSAGE FORMS DAILY; 150 MG, 0?0?0?2
     Route: 048
  4. DOXAZOSIN [Concomitant]
     Active Substance: DOXAZOSIN MESYLATE
     Dosage: 2 MILLIGRAM DAILY; 0?0?0?1
     Route: 048
  5. VENLAFAXIN [Suspect]
     Active Substance: VENLAFAXINE HYDROCHLORIDE
     Dosage: 300 MILLIGRAM DAILY; 1?1?0?0, SUSTAINED?RELEASE CAPSULES
     Route: 048
  6. LEVOTHYROXIN?NATRIUM [Concomitant]
     Active Substance: LEVOTHYROXINE SODIUM
     Dosage: 50 MICROGRAM DAILY; 1?0?0?0
     Route: 048
  7. RISPERIDON [Suspect]
     Active Substance: RISPERIDONE
     Dosage: 1 MILLIGRAM DAILY; 0?0?0?1
     Route: 048

REACTIONS (3)
  - Depression [Unknown]
  - Psychotic symptom [Unknown]
  - Depressed mood [Unknown]
